FAERS Safety Report 4579114-1 (Version None)
Quarter: 2005Q1

REPORT INFORMATION
  Report Type: 
  Country: None (occurrence: None)
  Receive Date: 20050119
  Receipt Date: 20040908
  Transmission Date: 20050727
  Serious: Yes (Hospitalization)
  Sender: FDA-Public Use
  Company Number: A03200403092

PATIENT
  Age: 73 Year
  Sex: Male
  Weight: 62.5964 kg

DRUGS (7)
  1. PLAVIX [Suspect]
     Indication: STENT PLACEMENT
     Dosage: 75 MG QOD - ORAL
     Route: 048
     Dates: start: 20020101
  2. ACETYLSALICYLIC ACID SRT [Concomitant]
     Indication: RENAL DISORDER
  3. AMIODARONE HCL [Concomitant]
  4. METOPROLOL AUCCINATE [Concomitant]
  5. AMLODIPINE [Concomitant]
  6. TELMISARTAN [Concomitant]
  7. SIMVASTATIN [Concomitant]

REACTIONS (1)
  - HAEMOGLOBIN DECREASED [None]
